FAERS Safety Report 9717042 (Version 1)
Quarter: 2013Q4

REPORT INFORMATION
  Report Type: Spontaneous
  Country: US (occurrence: US)
  Receive Date: 20131127
  Receipt Date: 20131127
  Transmission Date: 20140711
  Serious: No
  Sender: FDA-Public Use
  Company Number: US-GILEAD-2009-0020337

PATIENT
  Sex: Female
  Weight: 46.27 kg

DRUGS (15)
  1. LETAIRIS [Suspect]
     Indication: PULMONARY ARTERIAL HYPERTENSION
     Route: 048
     Dates: start: 20080731
  2. COUMADIN [Concomitant]
     Route: 048
  3. DIGOXIN [Concomitant]
     Route: 048
  4. SILDENAFIL POWDER [Concomitant]
     Route: 048
  5. FUROSEMIDE [Concomitant]
     Route: 048
  6. ZOCOR [Concomitant]
     Route: 048
  7. PREDNISONE [Concomitant]
     Route: 048
  8. SPIRIVA HANDIHALER [Concomitant]
     Route: 055
  9. ATROVENT NASAL SPRAY [Concomitant]
     Route: 045
  10. SINGULAIR [Concomitant]
     Route: 048
  11. XOPENEX NEB SOL [Concomitant]
     Route: 048
  12. ALPRAZOLAM [Concomitant]
     Route: 048
  13. FOSAMAX [Concomitant]
     Route: 048
  14. PRILOSEC [Concomitant]
     Route: 048
  15. POTASSIUM CHLORIDE [Concomitant]
     Route: 048

REACTIONS (1)
  - Contusion [Unknown]
